FAERS Safety Report 9598638 (Version 1)
Quarter: 2013Q4

REPORT INFORMATION
  Report Type: Spontaneous
  Country: US (occurrence: US)
  Receive Date: 20131004
  Receipt Date: 20131004
  Transmission Date: 20140711
  Serious: No
  Sender: FDA-Public Use
  Company Number: US-AMGEN-USASP2013024762

PATIENT
  Age: 55 Year
  Sex: Female
  Weight: 99.77 kg

DRUGS (3)
  1. ENBREL [Suspect]
     Indication: PRODUCT USED FOR UNKNOWN INDICATION
     Dosage: 50 MG, 2 TIMES/WK
     Route: 058
  2. PROBIOTIC                          /06395501/ [Concomitant]
     Dosage: UNK
  3. HYDRALAZINE [Concomitant]
     Dosage: 100 MG, UNK

REACTIONS (3)
  - Condition aggravated [Unknown]
  - Skin fissures [Unknown]
  - Drug ineffective [Unknown]
